FAERS Safety Report 23723808 (Version 1)
Quarter: 2024Q2

REPORT INFORMATION
  Report Type: Spontaneous
  Country: US (occurrence: US)
  Receive Date: 20240409
  Receipt Date: 20240409
  Transmission Date: 20240716
  Serious: Yes (Other)
  Sender: FDA-Public Use
  Company Number: US-BAUSCHBL-2024BNL004194

PATIENT
  Age: 34 Year
  Sex: Male

DRUGS (1)
  1. WATER [Suspect]
     Active Substance: WATER
     Indication: Eye irrigation
     Dosage: ONCE OR TWICE
     Route: 047
     Dates: start: 202303, end: 202308

REACTIONS (2)
  - Chemical burn [Recovered/Resolved]
  - Expired product administered [Unknown]

NARRATIVE: CASE EVENT DATE: 20230905
